FAERS Safety Report 8318004-5 (Version None)
Quarter: 2012Q2

REPORT INFORMATION
  Report Type: 
  Country: None (occurrence: None)
  Receive Date: 20120427
  Receipt Date: 20120418
  Transmission Date: 20120825
  Serious: No
  Sender: FDA-Public Use
  Company Number: US-BAYER-2012-039097

PATIENT
  Age: 75 Year
  Sex: Male
  Weight: 93 kg

DRUGS (1)
  1. ALEVE [Suspect]
     Indication: ARTHRITIS
     Dosage: 1 U, BID
     Route: 048
     Dates: start: 20120401, end: 20120417

REACTIONS (3)
  - FEELING OF RELAXATION [None]
  - DYSPEPSIA [None]
  - DRUG INEFFECTIVE [None]
